FAERS Safety Report 6670709-8 (Version None)
Quarter: 2010Q2

REPORT INFORMATION
  Report Type: 
  Country: None (occurrence: None)
  Receive Date: 20100407
  Receipt Date: 20100401
  Transmission Date: 20101027
  Serious: Yes (Other)
  Sender: FDA-Public Use
  Company Number: US-BAYER-201013830BCC

PATIENT
  Age: 45 Year
  Sex: Male
  Weight: 93 kg

DRUGS (10)
  1. ALEVE (CAPLET) [Suspect]
     Indication: HEADACHE
     Dosage: UNIT DOSE: 220 MG
     Route: 048
     Dates: start: 20100331
  2. MINOCYCLINE HYDROCHLORIDE [Concomitant]
     Route: 065
  3. ETODOLAC [Concomitant]
     Route: 065
  4. CHLORPROZIAD [Concomitant]
     Route: 065
  5. SEROQUEL [Concomitant]
     Route: 065
  6. PROTONIX [Concomitant]
     Route: 065
  7. MACTAL [Concomitant]
     Route: 065
  8. GAVOPIN [Concomitant]
     Route: 065
  9. MATIRIPTYLANE [Concomitant]
     Route: 065
  10. GENERIC FLOMAX [Concomitant]
     Route: 065

REACTIONS (3)
  - DYSPEPSIA [None]
  - FALL [None]
  - SYNCOPE [None]
